FAERS Safety Report 15285643 (Version 1)
Quarter: 2018Q3

REPORT INFORMATION
  Report Type: Spontaneous
  Country: US (occurrence: US)
  Receive Date: 20180802
  Receipt Date: 20180802
  Transmission Date: 20181010
  Serious: Yes (Disabling)
  Sender: FDA-Public Use
  Company Number: None

PATIENT
  Age: 54 Year
  Sex: Male
  Weight: 81 kg

DRUGS (8)
  1. ASPIRIN. [Concomitant]
     Active Substance: ASPIRIN
  2. ANDROGEL [Concomitant]
     Active Substance: TESTOSTERONE
  3. ATORVASTATIN [Concomitant]
     Active Substance: ATORVASTATIN
  4. LISINOPRIL. [Concomitant]
     Active Substance: LISINOPRIL
  5. METFORMIN [Concomitant]
     Active Substance: METFORMIN HYDROCHLORIDE
  6. VITAMIN D [Concomitant]
     Active Substance: CHOLECALCIFEROL
  7. SULFAMETHOXAZOLE?TMP DS TABLET [Suspect]
     Active Substance: SULFAMETHOXAZOLE\TRIMETHOPRIM
     Indication: URINARY TRACT INFECTION
     Dosage: ?          QUANTITY:1 TABLET(S);?
     Route: 048
     Dates: start: 20180731, end: 20180731
  8. CIALIS [Concomitant]
     Active Substance: TADALAFIL

REACTIONS (9)
  - Nausea [None]
  - Product substitution issue [None]
  - Pyrexia [None]
  - Diarrhoea [None]
  - Hypopnoea [None]
  - Vomiting [None]
  - Pruritus [None]
  - Urticaria [None]
  - Chills [None]

NARRATIVE: CASE EVENT DATE: 20180731
